FAERS Safety Report 6920805-2 (Version None)
Quarter: 2010Q3

REPORT INFORMATION
  Report Type: 
  Country: None (occurrence: None)
  Receive Date: 20100804
  Receipt Date: 20091019
  Transmission Date: 20110219
  Serious: No
  Sender: FDA-Public Use
  Company Number: 2009-4306

PATIENT
  Age: 27 Year
  Sex: Male
  Weight: 117 kg

DRUGS (6)
  1. SOMATULINE DEPOT [Suspect]
     Indication: ACROMEGALY
     Dosage: (60 MG, 1 IN 28 D), SUBCUTANEOUS
     Route: 058
     Dates: start: 20090702, end: 20090922
  2. SOMAVERT [Concomitant]
  3. ANDROGEL [Concomitant]
  4. LEVOTHYROXINE SODIUM [Concomitant]
  5. PREDNISONE [Concomitant]
  6. MARIN (MARIN) [Concomitant]

REACTIONS (3)
  - CHILLS [None]
  - INJECTION SITE PAIN [None]
  - NAUSEA [None]
